FAERS Safety Report 4295360-9 (Version None)
Quarter: 2004Q1

REPORT INFORMATION
  Report Type: 
  Country: None (occurrence: None)
  Receive Date: 20040216
  Receipt Date: 20030625
  Transmission Date: 20041129
  Serious: No
  Sender: FDA-Public Use
  Company Number: US-GLAXOSMITHKLINE-A0414036A

PATIENT
  Age: 26 Year
  Sex: Female

DRUGS (2)
  1. LAMICTAL [Suspect]
     Dosage: 150MG TWICE PER DAY
     Route: 048
  2. FOLIC ACID [Concomitant]

REACTIONS (1)
  - RASH [None]
